FAERS Safety Report 7233335-8 (Version None)
Quarter: 2011Q1

REPORT INFORMATION
  Report Type: 
  Country: None (occurrence: None)
  Receive Date: 20110119
  Receipt Date: 20110110
  Transmission Date: 20110831
  Serious: Yes (Other)
  Sender: FDA-Public Use
  Company Number: DE-ROCHE-745171

PATIENT
  Sex: Male
  Weight: 74 kg

DRUGS (2)
  1. PEGASYS [Suspect]
     Indication: HEPATITIS C
     Route: 065
     Dates: start: 20090427, end: 20100906
  2. COPEGUS [Concomitant]
     Indication: HEPATITIS C
     Route: 065
     Dates: start: 20090427, end: 20100906

REACTIONS (1)
  - TONGUE DISORDER [None]
